FAERS Safety Report 24561535 (Version 2)
Quarter: 2024Q4

REPORT INFORMATION
  Report Type: Spontaneous
  Country: CA (occurrence: CA)
  Receive Date: 20241029
  Receipt Date: 20241122
  Transmission Date: 20250115
  Serious: Yes (Death, Hospitalization)
  Sender: EISAI
  Company Number: CA-Eisai-EC-2024-177397

PATIENT
  Age: 70 Year
  Sex: Female

DRUGS (2)
  1. LENVATINIB [Suspect]
     Active Substance: LENVATINIB
     Indication: Endometrial cancer
     Route: 048
  2. KEYTRUDA [Suspect]
     Active Substance: PEMBROLIZUMAB
     Indication: Endometrial cancer
     Dosage: FREQUENCY UNKNOWN

REACTIONS (4)
  - Abdominal distension [Fatal]
  - Acute kidney injury [Fatal]
  - Malignant neoplasm progression [Fatal]
  - Product use issue [Fatal]
